FAERS Safety Report 6706152-2 (Version None)
Quarter: 2010Q2

REPORT INFORMATION
  Report Type: 
  Country: None (occurrence: None)
  Receive Date: 20100503
  Receipt Date: 20100427
  Transmission Date: 20101027
  Serious: Yes (Death)
  Sender: FDA-Public Use
  Company Number: US-SANOFI-AVENTIS-2010SA024813

PATIENT
  Age: 51 Year
  Sex: Male

DRUGS (1)
  1. AMARYL [Suspect]
     Route: 048
     Dates: end: 20091202

REACTIONS (1)
  - ARTERIAL OCCLUSIVE DISEASE [None]
